FAERS Safety Report 9269605 (Version 1)
Quarter: 2013Q2

REPORT INFORMATION
  Report Type: Spontaneous
  Country: FR (occurrence: FR)
  Receive Date: 20130503
  Receipt Date: 20130503
  Transmission Date: 20140414
  Serious: Yes (Hospitalization)
  Sender: FDA-Public Use
  Company Number: FR-PFIZER INC-2013133890

PATIENT
  Age: 82 Year
  Sex: Female

DRUGS (14)
  1. LYRICA [Suspect]
     Indication: PAIN
     Dosage: 200 MG, 1X/DAY
     Route: 048
     Dates: start: 20120906, end: 20121205
  2. ROCEPHINE [Suspect]
     Indication: OSTEOMYELITIS
     Dosage: 4 G, 1X/DAY
     Route: 042
     Dates: start: 20100906, end: 20121201
  3. ATHYMIL [Concomitant]
     Dosage: UNK
  4. IMOVANE [Concomitant]
     Dosage: UNK
  5. LEVOTHYROX [Concomitant]
     Dosage: UNK
  6. OXYCONTIN [Concomitant]
     Dosage: UNK
  7. OXYNORM [Concomitant]
     Dosage: UNK
  8. DOLIPRANE [Concomitant]
     Dosage: UNK
  9. LASILIX [Concomitant]
     Dosage: UNK
  10. CALCIPARIN [Concomitant]
     Dosage: UNK
  11. UMULINE [Concomitant]
     Dosage: UNK
  12. ATARAX [Concomitant]
     Dosage: UNK
  13. APIDRA [Concomitant]
     Dosage: UNK
     Dates: end: 20121114
  14. SKENAN [Concomitant]
     Dosage: UNK
     Dates: end: 20121121

REACTIONS (1)
  - Drug reaction with eosinophilia and systemic symptoms [Recovered/Resolved]
